FAERS Safety Report 19424018 (Version 1)
Quarter: 2021Q2

REPORT INFORMATION
  Report Type: Spontaneous
  Country: GB (occurrence: GB)
  Receive Date: 20210616
  Receipt Date: 20210616
  Transmission Date: 20210717
  Serious: Yes (Disabling, Other)
  Sender: FDA-Public Use
  Company Number: GB-PFIZER INC-2021649366

PATIENT
  Age: 42 Year
  Sex: Female
  Weight: 57.15 kg

DRUGS (5)
  1. HYDROCORTISONE ACETATE. [Suspect]
     Active Substance: HYDROCORTISONE ACETATE
     Indication: ECZEMA
     Dosage: 0.1
     Route: 061
     Dates: start: 20000915
  2. BETAMETHASONE VALERATE. [Suspect]
     Active Substance: BETAMETHASONE VALERATE
     Indication: ECZEMA
     Dosage: 0.1
     Route: 061
     Dates: start: 20001117, end: 20201102
  3. TAMOXIFEN [Concomitant]
     Active Substance: TAMOXIFEN
     Dosage: UNK
  4. MOMETASONE [Suspect]
     Active Substance: MOMETASONE
     Indication: ECZEMA
     Dosage: 0.1
     Route: 061
     Dates: start: 20070718
  5. CLOBETASONE [Suspect]
     Active Substance: CLOBETASONE
     Indication: ECZEMA
     Dosage: 0.05
     Route: 061
     Dates: start: 20001017

REACTIONS (12)
  - Erythema [Unknown]
  - Skin disorder [Unknown]
  - Alopecia [Unknown]
  - Dry skin [Unknown]
  - Eczema [Unknown]
  - Skin exfoliation [Unknown]
  - Eye swelling [Unknown]
  - Steroid withdrawal syndrome [Unknown]
  - Pruritus [Unknown]
  - Lymphadenopathy [Unknown]
  - Temperature regulation disorder [Unknown]
  - Skin atrophy [Recovering/Resolving]

NARRATIVE: CASE EVENT DATE: 20180101
